FAERS Safety Report 18520837 (Version 1)
Quarter: 2020Q4

REPORT INFORMATION
  Report Type: Spontaneous
  Country: US (occurrence: US)
  Receive Date: 20201119
  Receipt Date: 20201119
  Transmission Date: 20210114
  Serious: No
  Sender: FDA-Public Use
  Company Number: US-HIKMA PHARMACEUTICALS USA INC.-US-H14001-19-05895

PATIENT
  Age: 76 Year
  Sex: Female

DRUGS (3)
  1. IPRATROPIUM [Suspect]
     Active Substance: IPRATROPIUM
     Indication: EAR DISORDER
  2. IPRATROPIUM [Suspect]
     Active Substance: IPRATROPIUM
     Indication: OROPHARYNGEAL DISCOMFORT
  3. IPRATROPIUM [Suspect]
     Active Substance: IPRATROPIUM
     Indication: NASAL CONGESTION

REACTIONS (1)
  - Incorrect dose administered [Unknown]

NARRATIVE: CASE EVENT DATE: 20191111
